FAERS Safety Report 10006922 (Version 1)
Quarter: 2014Q1

REPORT INFORMATION
  Report Type: Spontaneous
  Country: US (occurrence: None)
  Receive Date: 20140312
  Receipt Date: 20140312
  Transmission Date: 20141002
  Serious: Yes (Hospitalization, Other)
  Sender: FDA-Public Use
  Company Number: None

PATIENT
  Age: 30 Year
  Sex: 0

DRUGS (1)
  1. SERTRALINE [Suspect]
     Indication: PANIC ATTACK
     Dosage: 1.5 TABLETS DAILY ONCE DAILY TAKEN BY MOUTH
     Route: 048

REACTIONS (4)
  - Weight increased [None]
  - Constipation [None]
  - Abdominal pain upper [None]
  - Impaired gastric emptying [None]
